FAERS Safety Report 14671892 (Version 4)
Quarter: 2019Q3

REPORT INFORMATION
  Report Type: Report from Study
  Country: TW (occurrence: TW)
  Receive Date: 20180323
  Receipt Date: 20190812
  Transmission Date: 20191004
  Serious: Yes (Death, Life-Threatening, Hospitalization, Other)
  Sender: FDA-Public Use
  Company Number: TW-INCYTE CORPORATION-2017IN008324

PATIENT

DRUGS (52)
  1. CODEINE PHOSPHATE [Concomitant]
     Active Substance: CODEINE PHOSPHATE
     Indication: PROPHYLAXIS
     Dosage: 15 MG, UNK
     Route: 042
     Dates: start: 20180202, end: 20180202
  2. BISACODYL. [Concomitant]
     Active Substance: BISACODYL
     Dosage: 10 MG, UNK
     Route: 048
     Dates: start: 20180205, end: 20180205
  3. ACETYL CYSTEINE SENJU [Concomitant]
     Active Substance: ACETYLCYSTEINE
     Dosage: 600 MG, UNK
     Route: 048
     Dates: start: 20180119
  4. METOCLOPRAMIDE. [Concomitant]
     Active Substance: METOCLOPRAMIDE
     Indication: CONSTIPATION
     Dosage: 9.08 MG, UNK
     Route: 042
     Dates: start: 20180101, end: 20180106
  5. DIOKTAEDRISCHER SMEKTIT [Concomitant]
     Indication: ENTEROCOCCAL INFECTION
     Dosage: 3 G, UNK
     Route: 048
     Dates: start: 20180105, end: 20180108
  6. BISACODYL. [Concomitant]
     Active Substance: BISACODYL
     Indication: ENTEROCOCCAL INFECTION
     Dosage: 10 MG, UNK
     Route: 050
     Dates: start: 20180101, end: 20180101
  7. BISACODYL. [Concomitant]
     Active Substance: BISACODYL
     Dosage: 10 MG, UNK
     Route: 048
     Dates: start: 20180205, end: 20180208
  8. CURAM                              /00852501/ [Concomitant]
     Indication: ENTEROCOCCAL INFECTION
     Dosage: 625 MG, UNK
     Route: 048
     Dates: start: 20160729, end: 20171229
  9. DILTIAZEM HCL [Concomitant]
     Active Substance: DILTIAZEM HYDROCHLORIDE
     Dosage: 30 MG, UNK
     Route: 048
     Dates: start: 20180219, end: 20180226
  10. DIOKTAEDRISCHER SMEKTIT [Concomitant]
     Dosage: 3 G, UNK
     Route: 048
     Dates: start: 20180110, end: 20180112
  11. JAKAVI [Suspect]
     Active Substance: RUXOLITINIB
     Indication: MYELOFIBROSIS
     Dosage: 10 MG, BID
     Route: 048
     Dates: start: 20170106, end: 20171229
  12. CLOBATE                            /00337102/ [Concomitant]
     Indication: PROPHYLAXIS
     Dosage: 25 G, UNK (TUBE)
     Route: 061
     Dates: start: 20170630, end: 20170922
  13. ACETYL CYSTEINE SENJU [Concomitant]
     Active Substance: ACETYLCYSTEINE
     Dosage: UNK
     Route: 048
     Dates: start: 20180119
  14. SENNOSIDE A+B CALCIUM [Concomitant]
     Active Substance: SENNOSIDES A AND B
     Indication: ENTEROCOCCAL INFECTION
     Dosage: 12 MG, UNK
     Route: 048
     Dates: start: 20180101, end: 20180105
  15. METRONIDAZOLE. [Concomitant]
     Active Substance: METRONIDAZOLE
     Indication: ENTEROCOCCAL INFECTION
     Dosage: 500 MG, UNK
     Route: 042
     Dates: start: 20171231, end: 20180102
  16. METRONIDAZOLE. [Concomitant]
     Active Substance: METRONIDAZOLE
     Indication: OSTEORADIONECROSIS
  17. DILTIAZEM HCL [Concomitant]
     Active Substance: DILTIAZEM HYDROCHLORIDE
     Dosage: 30 MG, UNK
     Route: 048
     Dates: start: 20180128, end: 20180128
  18. CALADRYL                           /01381001/ [Concomitant]
     Dosage: 30 MG, UNK
     Route: 042
     Dates: start: 20180301, end: 20180301
  19. LACTULOSE. [Concomitant]
     Active Substance: LACTULOSE
     Indication: ENTEROCOCCAL INFECTION
     Dosage: 30 ML, UNK
     Route: 048
     Dates: start: 20180307, end: 20180307
  20. MAXITROL [Concomitant]
     Active Substance: DEXAMETHASONE\NEOMYCIN SULFATE\POLYMYXIN B SULFATE
     Indication: ENTEROCOCCAL INFECTION
     Dosage: 40 MG, UNK
     Route: 061
     Dates: start: 20180117
  21. SPIRONOLACTONE. [Concomitant]
     Active Substance: SPIRONOLACTONE
     Indication: ENTEROCOCCAL INFECTION
     Dosage: 50 MG, UNK
     Route: 048
     Dates: start: 20180104, end: 20180104
  22. DILTIAZEM HCL [Concomitant]
     Active Substance: DILTIAZEM HYDROCHLORIDE
     Dosage: 30 MG, UNK
     Route: 048
     Dates: start: 20180131, end: 20180131
  23. HYDROCORTISONE. [Concomitant]
     Active Substance: HYDROCORTISONE
     Dosage: 100 MG, UNK
     Route: 042
     Dates: start: 20180306, end: 20180306
  24. INSULIN [Concomitant]
     Active Substance: INSULIN NOS
     Indication: TYPE 2 DIABETES MELLITUS
     Dosage: 8 DF, UNK
     Route: 058
     Dates: start: 20180122, end: 20180125
  25. TRANEXAMIC ACID. [Concomitant]
     Active Substance: TRANEXAMIC ACID
     Indication: ENTEROCOCCAL INFECTION
     Dosage: 500 MG, UNK
     Route: 048
     Dates: start: 20171215, end: 20171226
  26. ACETYL CYSTEINE SENJU [Concomitant]
     Active Substance: ACETYLCYSTEINE
     Indication: ENTEROCOCCAL INFECTION
     Dosage: 2 ML, UNK
     Route: 055
     Dates: start: 20180115, end: 20180118
  27. AMOXI CLAV [Concomitant]
     Active Substance: AMOXICILLIN\CLAVULANATE POTASSIUM
     Indication: ENTEROCOCCAL INFECTION
     Dosage: 1 DF, UNK
     Route: 042
     Dates: start: 20170912, end: 20170912
  28. LEVOCETIRIZINE [Concomitant]
     Active Substance: LEVOCETIRIZINE
     Indication: ENTEROCOCCAL INFECTION
     Dosage: 5 MG, UNK
     Route: 048
     Dates: start: 20170922, end: 20171006
  29. INSULIN [Concomitant]
     Active Substance: INSULIN NOS
     Dosage: 10 DF, UNK
     Route: 058
     Dates: start: 20180115, end: 20180201
  30. BISACODYL. [Concomitant]
     Active Substance: BISACODYL
     Dosage: 10 MG, UNK
     Route: 061
  31. APO NITROGLYCERIN [Concomitant]
     Active Substance: NITROGLYCERIN
     Indication: HYPERTENSION
     Dosage: 5 MG, UNK
     Route: 042
     Dates: start: 20180104, end: 20180104
  32. DILTIAZEM HCL [Concomitant]
     Active Substance: DILTIAZEM HYDROCHLORIDE
     Dosage: 30 MG, UNK
     Route: 048
     Dates: start: 20180107, end: 20180112
  33. DILTIAZEM HCL [Concomitant]
     Active Substance: DILTIAZEM HYDROCHLORIDE
     Dosage: 30 MG, UNK
     Route: 048
     Dates: start: 20180216, end: 20180218
  34. CALADRYL                           /01381001/ [Concomitant]
     Indication: PROPHYLAXIS
     Dosage: 30 MG, UNK
     Route: 042
     Dates: start: 20180111, end: 20180111
  35. CALADRYL                           /01381001/ [Concomitant]
     Dosage: 30 MG, UNK
     Route: 042
     Dates: start: 20180306, end: 20180306
  36. HYDROCORTISONE. [Concomitant]
     Active Substance: HYDROCORTISONE
     Dosage: 100 MG, UNK
     Route: 042
     Dates: start: 20180111, end: 20180111
  37. CLOPIDOGREL [Concomitant]
     Active Substance: CLOPIDOGREL BISULFATE
     Indication: THROMBOCYTOSIS
     Dosage: 75 MG, UNK
     Route: 048
     Dates: start: 20140304, end: 20171117
  38. ACETYL CYSTEINE SENJU [Concomitant]
     Active Substance: ACETYLCYSTEINE
     Dosage: 600 MG, UNK
     Route: 048
     Dates: start: 20170912, end: 20170925
  39. CONSLIFE [Concomitant]
     Indication: ENTEROCOCCAL INFECTION
     Dosage: 1 DF, UNK
     Route: 065
     Dates: start: 20180129, end: 20180220
  40. DILTIAZEM HCL [Concomitant]
     Active Substance: DILTIAZEM HYDROCHLORIDE
     Indication: HYPERTENSION
     Dosage: 30 MG, UNK
     Route: 048
     Dates: start: 20180105, end: 20180105
  41. FAMOTIDINE. [Concomitant]
     Active Substance: FAMOTIDINE
     Indication: PROPHYLAXIS
     Dosage: 20 MG, UNK
     Route: 048
     Dates: start: 20180104
  42. FENTANYL. [Concomitant]
     Active Substance: FENTANYL
     Indication: ENTEROCOCCAL INFECTION
     Dosage: 12 MCG/ML, UNK
     Route: 061
     Dates: start: 20180212
  43. LABETALOL [Concomitant]
     Active Substance: LABETALOL\LABETALOL HYDROCHLORIDE
     Indication: ENTEROCOCCAL INFECTION
     Dosage: 200 MG, UNK
     Route: 048
     Dates: start: 20180102, end: 20180104
  44. INSULIN [Concomitant]
     Active Substance: INSULIN NOS
     Indication: ENTEROCOCCAL INFECTION
     Dosage: 4 DF, UNK
     Route: 058
     Dates: start: 20180115, end: 20180121
  45. INSULIN [Concomitant]
     Active Substance: INSULIN NOS
     Dosage: 6 DF, UNK
     Route: 060
     Dates: start: 20180104, end: 20180114
  46. SULFAMETHOXAZOLE [Concomitant]
     Active Substance: SULFAMETHOXAZOLE
     Indication: CONJUNCTIVITIS
     Dosage: 9 ML, UNK (10 ML/BOT)
     Route: 050
     Dates: start: 20161118
  47. AMOXI CLAV [Concomitant]
     Active Substance: AMOXICILLIN\CLAVULANATE POTASSIUM
     Indication: OSTEONECROSIS OF JAW
  48. FLURBIPROFEN. [Concomitant]
     Active Substance: FLURBIPROFEN
     Indication: ENTEROCOCCAL INFECTION
     Dosage: 40 MG, UNK
     Route: 061
  49. ESOMEPRAZOLE. [Concomitant]
     Active Substance: ESOMEPRAZOLE MAGNESIUM
     Indication: ENTEROCOCCAL INFECTION
     Dosage: 40 MG, UNK
     Route: 042
     Dates: start: 20180101, end: 20180101
  50. HYDROCORTISONE. [Concomitant]
     Active Substance: HYDROCORTISONE
     Indication: PROPHYLAXIS
     Dosage: 100 MG, UNK
     Route: 042
     Dates: start: 20180301, end: 20180301
  51. INSULIN [Concomitant]
     Active Substance: INSULIN NOS
     Dosage: 14 DF, UNK
     Route: 058
     Dates: start: 20180125, end: 20180125
  52. INSULIN [Concomitant]
     Active Substance: INSULIN NOS
     Dosage: 12 DF, UNK
     Route: 058
     Dates: start: 20180202

REACTIONS (49)
  - Acute kidney injury [Unknown]
  - Haemothorax [Unknown]
  - Lung infiltration [Unknown]
  - Asthenia [Unknown]
  - Generalised oedema [Recovered/Resolved]
  - Hyponatraemia [Unknown]
  - Sepsis [Unknown]
  - Feeling abnormal [Unknown]
  - Swelling [Recovered/Resolved]
  - Tachycardia [Not Recovered/Not Resolved]
  - Cough [Unknown]
  - Respiratory distress [Unknown]
  - Cerebrovascular accident [Not Recovered/Not Resolved]
  - Pulmonary oedema [Unknown]
  - Atrial fibrillation [Not Recovered/Not Resolved]
  - Oedema [Recovered/Resolved]
  - Hyperkalaemia [Recovered/Resolved]
  - Diarrhoea [Unknown]
  - Pyrexia [Unknown]
  - Candida infection [Recovered/Resolved]
  - Osteoradionecrosis [Recovered/Resolved]
  - Osteonecrosis of jaw [Recovered/Resolved]
  - Oliguria [Unknown]
  - Abscess [Unknown]
  - Gastrointestinal haemorrhage [Unknown]
  - Tachypnoea [Recovered/Resolved]
  - Enterococcal infection [Not Recovered/Not Resolved]
  - Apnoea [Unknown]
  - Facial pain [Recovered/Resolved]
  - Pulseless electrical activity [Unknown]
  - Death [Fatal]
  - Tachypnoea [Recovered/Resolved]
  - Alanine aminotransferase increased [Unknown]
  - Anuria [Unknown]
  - Hypokalaemia [Recovered/Resolved]
  - Leukocytosis [Unknown]
  - Respiratory failure [Not Recovered/Not Resolved]
  - Haematemesis [Unknown]
  - Palpitations [Unknown]
  - Pleural effusion [Unknown]
  - Pneumonia [Not Recovered/Not Resolved]
  - Decreased appetite [Unknown]
  - Erythema [Not Recovered/Not Resolved]
  - Tachypnoea [Recovered/Resolved]
  - Anaemia [Unknown]
  - Breath odour [Unknown]
  - Dyspnoea [Unknown]
  - C-reactive protein increased [Unknown]
  - Oxygen saturation decreased [Unknown]

NARRATIVE: CASE EVENT DATE: 20170912
